FAERS Safety Report 7580771-6 (Version None)
Quarter: 2011Q2

REPORT INFORMATION
  Report Type: 
  Country: None (occurrence: None)
  Receive Date: 20110629
  Receipt Date: 20110616
  Transmission Date: 20111010
  Serious: Yes (Other)
  Sender: FDA-Public Use
  Company Number: US-BAYER-2011-052762

PATIENT
  Sex: Female
  Weight: 61 kg

DRUGS (4)
  1. NEXIUM [Concomitant]
  2. MULTI-VITAMINS [Suspect]
     Dosage: UNK
     Route: 048
     Dates: end: 20110613
  3. TOPROL-XL [Concomitant]
  4. ASPIRIN [Concomitant]

REACTIONS (1)
  - CHOKING [None]
